FAERS Safety Report 10689941 (Version 1)
Quarter: 2015Q1

REPORT INFORMATION
  Report Type: Spontaneous
  Country: US (occurrence: None)
  Receive Date: 20150102
  Receipt Date: 20150102
  Transmission Date: 20150720
  Serious: No
  Sender: FDA-Public Use
  Company Number: None

PATIENT
  Age: 54 Year
  Sex: Male
  Weight: 130.5 kg

DRUGS (2)
  1. FOSINOPRIL [Suspect]
     Active Substance: FOSINOPRIL
     Indication: HYPERTENSION
     Route: 048
     Dates: start: 20131217, end: 20141017
  2. EVEROLIMUS [Suspect]
     Active Substance: EVEROLIMUS
     Indication: RENAL CELL CARCINOMA
     Route: 048
     Dates: start: 20140828, end: 20141017

REACTIONS (3)
  - Angioedema [None]
  - Cough [None]
  - Wheezing [None]

NARRATIVE: CASE EVENT DATE: 20141017
